FAERS Safety Report 24653166 (Version 1)
Quarter: 2024Q4

REPORT INFORMATION
  Report Type: Spontaneous
  Country: US (occurrence: US)
  Receive Date: 20241122
  Receipt Date: 20241122
  Transmission Date: 20250114
  Serious: No
  Sender: PFIZER
  Company Number: US-SEATTLE GENETICS-2023SGN10611

PATIENT
  Age: 48 Year
  Sex: Female

DRUGS (2)
  1. TUKYSA [Suspect]
     Active Substance: TUCATINIB
     Dosage: 300 MG, 2X/DAY
     Dates: start: 202308
  2. TUKYSA [Suspect]
     Active Substance: TUCATINIB
     Dosage: 200 MG, 2X/DAY
     Route: 048

REACTIONS (1)
  - Hepatic enzyme increased [Unknown]
